FAERS Safety Report 8274579-6 (Version None)
Quarter: 2012Q2

REPORT INFORMATION
  Report Type: 
  Country: None (occurrence: None)
  Receive Date: 20120411
  Receipt Date: 20100414
  Transmission Date: 20120825
  Serious: Yes (Other)
  Sender: FDA-Public Use
  Company Number: US-GLAXOSMITHKLINE-A0855023A

PATIENT
  Age: 85 Year
  Sex: Female

DRUGS (6)
  1. CELEXA [Concomitant]
  2. ADVAIR DISKUS 100/50 [Suspect]
     Indication: CHRONIC OBSTRUCTIVE PULMONARY DISEASE
     Dosage: 1PUFF TWICE PER DAY
     Route: 055
     Dates: start: 20100413
  3. VITAMIN TAB [Concomitant]
  4. PREDNISONE TAB [Concomitant]
  5. ATROVENT [Concomitant]
  6. ADVAIR DISKUS 100/50 [Suspect]
     Dosage: 1PUFF TWICE PER DAY
     Route: 055
     Dates: start: 20111201, end: 20120404

REACTIONS (4)
  - DYSPHONIA [None]
  - SOMNOLENCE [None]
  - CATARACT [None]
  - VISION BLURRED [None]
